FAERS Safety Report 15308896 (Version 2)
Quarter: 2018Q4

REPORT INFORMATION
  Report Type: Spontaneous
  Country: SV (occurrence: SV)
  Receive Date: 20180823
  Receipt Date: 20181009
  Transmission Date: 20190204
  Serious: Yes (Other)
  Sender: FDA-Public Use
  Company Number: GT-MERCK KGAA-2054118

PATIENT
  Age: 31 Year
  Sex: Female

DRUGS (3)
  1. EUTIROX [Suspect]
     Active Substance: LEVOTHYROXINE SODIUM
  2. EUTIROX [Suspect]
     Active Substance: LEVOTHYROXINE SODIUM
     Dates: start: 201711, end: 201805
  3. EUTHYROX [Suspect]
     Active Substance: LEVOTHYROXINE SODIUM
     Indication: HYPOTHYROIDISM

REACTIONS (13)
  - Stress [None]
  - Feeling of despair [None]
  - Fear [None]
  - Hyperthyroidism [None]
  - Anxiety [None]
  - Weight decreased [None]
  - Fatigue [None]
  - Depression [None]
  - Bradycardia [None]
  - Insomnia [None]
  - Hypothyroidism [None]
  - Disturbance in attention [None]
  - Arrhythmia [None]
